FAERS Safety Report 7532997-5 (Version None)
Quarter: 2011Q2

REPORT INFORMATION
  Report Type: 
  Country: None (occurrence: None)
  Receive Date: 20110608
  Receipt Date: 20110601
  Transmission Date: 20111010
  Serious: Yes (Other)
  Sender: FDA-Public Use
  Company Number: JP-PFIZER INC-2011114379

PATIENT
  Age: 80 Year
  Sex: Male

DRUGS (2)
  1. ITRACONAZOLE [Concomitant]
     Route: 065
  2. ZYVOX [Suspect]
     Dosage: 1200 MG/DAY
     Route: 041
     Dates: start: 20110526, end: 20110529

REACTIONS (2)
  - CONVULSION [None]
  - HALLUCINATION [None]
